FAERS Safety Report 13229568 (Version 2)
Quarter: 2017Q2

REPORT INFORMATION
  Report Type: Spontaneous
  Country: VC (occurrence: VC)
  Receive Date: 20170214
  Receipt Date: 20170512
  Transmission Date: 20170830
  Serious: Yes (Death, Life-Threatening, Other)
  Sender: FDA-Public Use
  Company Number: VC-ACCORD-048047

PATIENT
  Age: 40 Year
  Sex: Male

DRUGS (3)
  1. OMEPRAZOLE. [Concomitant]
     Active Substance: OMEPRAZOLE
  2. CLOZAPINE. [Suspect]
     Active Substance: CLOZAPINE
     Indication: SCHIZOPHRENIA
     Dosage: NIGHTLY.?ALSO RECEIVED AT DOSE OF 25 MG
  3. IBUPROFEN. [Concomitant]
     Active Substance: IBUPROFEN
     Indication: ARTHRALGIA

REACTIONS (2)
  - Treatment noncompliance [Unknown]
  - Pulmonary embolism [Fatal]
